FAERS Safety Report 11220941 (Version 1)
Quarter: 2015Q2

REPORT INFORMATION
  Report Type: Spontaneous
  Country: US (occurrence: US)
  Receive Date: 20150626
  Receipt Date: 20150626
  Transmission Date: 20150821
  Serious: No
  Sender: FDA-Public Use
  Company Number: US-009507513-1506USA005977

PATIENT
  Sex: Female

DRUGS (8)
  1. LAMOTRIGINE. [Concomitant]
     Active Substance: LAMOTRIGINE
     Dosage: 200 MG, UNK
  2. OXYGEN. [Concomitant]
     Active Substance: OXYGEN
     Dosage: UNK
  3. LEXAPRO [Concomitant]
     Active Substance: ESCITALOPRAM OXALATE
     Dosage: 20MG
  4. ASMANEX [Suspect]
     Active Substance: MOMETASONE FUROATE
     Indication: DYSPNOEA
     Dosage: 2 PUFFS/ TWICE A DAY
     Route: 055
     Dates: start: 201503
  5. SPIRIVA [Concomitant]
     Active Substance: TIOTROPIUM BROMIDE MONOHYDRATE
     Dosage: UNK
  6. PRAVASTATIN [Concomitant]
     Active Substance: PRAVASTATIN\PRAVASTATIN SODIUM
     Dosage: 40MG
  7. LATUDA [Concomitant]
     Active Substance: LURASIDONE HYDROCHLORIDE
     Dosage: 5 MG DAILY, TAKEN AS 10 MG TABLETS CUT IN HALF
  8. FORADIL [Suspect]
     Active Substance: FORMOTEROL FUMARATE
     Dosage: 12MCG TWICE A DAY
     Dates: start: 201409

REACTIONS (4)
  - Product quality issue [Unknown]
  - Tremor [Not Recovered/Not Resolved]
  - Drug administration error [Unknown]
  - Drug dose omission [Unknown]

NARRATIVE: CASE EVENT DATE: 2015
